FAERS Safety Report 10171773 (Version 1)
Quarter: 2014Q2

REPORT INFORMATION
  Report Type: Spontaneous
  Country: US (occurrence: None)
  Receive Date: 20140428
  Receipt Date: 20140428
  Transmission Date: 20141212
  Serious: Yes (Other)
  Sender: FDA-Public Use
  Company Number: PHEH2013US007057

PATIENT
  Age: 89 Year
  Sex: Female

DRUGS (3)
  1. LOTREL [Suspect]
     Indication: BLOOD PRESSURE
     Dosage: (5/20 MG)
  2. BABY ASPIRIN (ACETYLSALICYLIC ACID) [Concomitant]
  3. GARLIC (ALLIUM SATIVUM) [Concomitant]

REACTIONS (1)
  - Blood pressure increased [None]
